FAERS Safety Report 5214426-X (Version None)
Quarter: 2007Q1

REPORT INFORMATION
  Report Type: 
  Country: None (occurrence: None)
  Receive Date: 20070122
  Receipt Date: 20070116
  Transmission Date: 20070707
  Serious: Yes (Other)
  Sender: FDA-Public Use
  Company Number: US-JNJFOC-20061104237

PATIENT
  Sex: Female
  Weight: 68.04 kg

DRUGS (5)
  1. REMICADE [Suspect]
     Route: 042
  2. REMICADE [Suspect]
     Indication: PSORIATIC ARTHROPATHY
     Dosage: 3 INFUSIONS ON UNSPECIFIED DATES
     Route: 042
  3. SOMA [Concomitant]
  4. HYDROCODONE [Concomitant]
     Indication: PAIN
  5. DURAGESIC-100 [Concomitant]

REACTIONS (8)
  - ASTHENIA [None]
  - FATIGUE [None]
  - HEADACHE [None]
  - HYPOKINESIA [None]
  - INFLUENZA [None]
  - NAUSEA [None]
  - THROAT IRRITATION [None]
  - VISION BLURRED [None]
